FAERS Safety Report 4931037-1 (Version None)
Quarter: 2006Q1

REPORT INFORMATION
  Report Type: 
  Country: None (occurrence: None)
  Receive Date: 20060227
  Receipt Date: 20060220
  Transmission Date: 20060701
  Serious: Yes (Hospitalization)
  Sender: FDA-Public Use
  Company Number: 200510826GDS

PATIENT
  Age: 66 Year
  Sex: Male

DRUGS (1)
  1. LEVITRA [Suspect]
     Indication: ERECTILE DYSFUNCTION
     Dosage: 20 MG, TOTAL DAILY, ORAL
     Route: 048

REACTIONS (6)
  - CEREBRAL HAEMORRHAGE [None]
  - DIPLOPIA [None]
  - GAIT DISTURBANCE [None]
  - HEADACHE [None]
  - HEMIANOPIA HOMONYMOUS [None]
  - VISUAL FIELD DEFECT [None]
